FAERS Safety Report 22126663 (Version 1)
Quarter: 2023Q1

REPORT INFORMATION
  Report Type: Spontaneous
  Country: KR (occurrence: KR)
  Receive Date: 20230322
  Receipt Date: 20230322
  Transmission Date: 20230417
  Serious: Yes (Other)
  Sender: FDA-Public Use
  Company Number: KR-MYLANLABS-2023M1029675

PATIENT
  Age: 49 Year
  Sex: Female

DRUGS (5)
  1. CELEBREX [Suspect]
     Active Substance: CELECOXIB
     Dosage: 1 DF, 1X/DAY
     Dates: start: 20210824
  2. METHYLPREDNISOLONE SODIUM SUCCINATE [Suspect]
     Active Substance: METHYLPREDNISOLONE SODIUM SUCCINATE
     Dosage: 0.5 DF, 1X/DAY
     Dates: start: 20210824
  3. ACETAMINOPHEN\TRAMADOL HYDROCHLORIDE [Suspect]
     Active Substance: ACETAMINOPHEN\TRAMADOL HYDROCHLORIDE
     Dosage: 1 DF, 1X/DAY
     Dates: start: 20210824
  4. BUCILLAMINE [Suspect]
     Active Substance: BUCILLAMINE
     Dosage: 1 DF, 1X/DAY
     Dates: start: 20210824
  5. REBAMIPIDE [Suspect]
     Active Substance: REBAMIPIDE
     Dosage: 1 DF, 1X/DAY
     Dates: start: 20210824

REACTIONS (2)
  - Xerophthalmia [Unknown]
  - Dyspepsia [Unknown]

NARRATIVE: CASE EVENT DATE: 20210824
